FAERS Safety Report 9645382 (Version 4)
Quarter: 2013Q4

REPORT INFORMATION
  Report Type: Spontaneous
  Country: US (occurrence: US)
  Receive Date: 20131025
  Receipt Date: 20131219
  Transmission Date: 20140711
  Serious: Yes (Other)
  Sender: FDA-Public Use
  Company Number: US-PFIZER INC-2013300747

PATIENT
  Age: 82 Year
  Sex: Female
  Weight: 57.6 kg

DRUGS (2)
  1. ELELYSO [Suspect]
     Indication: GAUCHER^S DISEASE
     Dosage: 3200 UNITS, EVERY OTHER WEEK
     Route: 042
     Dates: start: 20130305, end: 20131015
  2. ELELYSO [Suspect]
     Dosage: UNK

REACTIONS (8)
  - Arthritis infective [Not Recovered/Not Resolved]
  - Streptococcal infection [Not Recovered/Not Resolved]
  - Pain in extremity [Not Recovered/Not Resolved]
  - Arthralgia [Not Recovered/Not Resolved]
  - Malaise [Unknown]
  - Pain [Unknown]
  - Activities of daily living impaired [Unknown]
  - Quality of life decreased [Unknown]
